FAERS Safety Report 4504151-2 (Version None)
Quarter: 2004Q4

REPORT INFORMATION
  Report Type: 
  Country: None (occurrence: None)
  Receive Date: 20041115
  Receipt Date: 20041101
  Transmission Date: 20050328
  Serious: Yes (Hospitalization)
  Sender: FDA-Public Use
  Company Number: 040051

PATIENT
  Age: 65 Year
  Sex: Female
  Weight: 43.9989 kg

DRUGS (4)
  1. HALFLYTELY [Suspect]
     Indication: COLONOSCOPY
     Dosage: 4 BIS/1X/PO
     Route: 048
     Dates: start: 20041024
  2. HIGH BLOOD PRESSURE [Concomitant]
  3. CALCIUM SUPPLEMENT [Concomitant]
  4. MULTI-VITAMIN [Concomitant]

REACTIONS (4)
  - BLOOD ELECTROLYTES ABNORMAL [None]
  - DEHYDRATION [None]
  - DIARRHOEA [None]
  - VOMITING [None]
